FAERS Safety Report 6754741-1 (Version None)
Quarter: 2010Q2

REPORT INFORMATION
  Report Type: 
  Country: None (occurrence: None)
  Receive Date: 20100601
  Receipt Date: 20100514
  Transmission Date: 20101027
  Serious: Yes (Hospitalization)
  Sender: FDA-Public Use
  Company Number: 011991

PATIENT
  Age: 70 Year
  Sex: Male
  Weight: 80 kg

DRUGS (2)
  1. NEUPRO [Suspect]
     Indication: PARKINSON'S DISEASE
     Dosage: (8 MG QD TRANSDERMAL)
     Route: 062
     Dates: start: 20080101, end: 20100101
  2. MADOPAR /00349201/ (MADOPAR) [Suspect]
     Indication: PARKINSON'S DISEASE
     Dosage: (100 MG 8X/DAY, SINGLE DOSE 100MG ORAL)
     Route: 048
     Dates: start: 20081101, end: 20100301

REACTIONS (3)
  - ABDOMINAL DISCOMFORT [None]
  - DYSKINESIA [None]
  - HALLUCINATION, VISUAL [None]
